FAERS Safety Report 10481915 (Version 1)
Quarter: 2014Q3

REPORT INFORMATION
  Report Type: Other
  Country: JP (occurrence: JP)
  Receive Date: 20140929
  Receipt Date: 20140929
  Transmission Date: 20150326
  Serious: Yes (Other)
  Sender: FDA-Public Use
  Company Number: JP-US-EMD SERONO, INC.-7322805

PATIENT
  Age: 62 Year
  Sex: Male

DRUGS (5)
  1. RANIMUSTINE [Suspect]
     Active Substance: RANIMUSTINE
     Indication: MALIGNANT MELANOMA
     Route: 042
  2. CISPLATIN. [Suspect]
     Active Substance: CISPLATIN
     Indication: MALIGNANT MELANOMA
     Route: 042
  3. VINCRISTINE [Suspect]
     Active Substance: VINCRISTINE
     Indication: MALIGNANT MELANOMA
     Route: 042
  4. INTERFERON BETA NOS [Suspect]
     Active Substance: INTERFERON BETA
     Indication: MALIGNANT MELANOMA
     Route: 023
  5. DACARBAZINE. [Suspect]
     Active Substance: DACARBAZINE
     Indication: MALIGNANT MELANOMA
     Route: 042

REACTIONS (1)
  - Sarcoidosis [Unknown]
